FAERS Safety Report 5765047-1 (Version None)
Quarter: 2008Q2

REPORT INFORMATION
  Report Type: 
  Country: None (occurrence: None)
  Receive Date: 20080611
  Receipt Date: 20080521
  Transmission Date: 20081010
  Serious: Yes (Death, Congenital Anomaly)
  Sender: FDA-Public Use
  Company Number: GB-ASTRAZENECA-2008AC01304

PATIENT
  Age: 0 Week
  Sex: Male
  Weight: 1.1 kg

DRUGS (3)
  1. CANDESARTAN CILEXETIL [Suspect]
     Route: 064
  2. BECLAMETHASONE [Concomitant]
     Route: 064
  3. ALBUTEROL [Concomitant]
     Route: 064

REACTIONS (6)
  - ANURIA [None]
  - BLADDER AGENESIS [None]
  - FOETAL GROWTH RETARDATION [None]
  - HYPOTENSION [None]
  - KIDNEY ENLARGEMENT [None]
  - SINGLE FUNCTIONAL KIDNEY [None]
